FAERS Safety Report 22165080 (Version 2)
Quarter: 2023Q2

REPORT INFORMATION
  Report Type: Spontaneous
  Country: AT (occurrence: AT)
  Receive Date: 20230403
  Receipt Date: 20230424
  Transmission Date: 20230721
  Serious: Yes (Other)
  Sender: FDA-Public Use
  Company Number: AT-PFIZER INC-PV202300050857

PATIENT
  Age: 54 Year
  Sex: Female
  Weight: 51 kg

DRUGS (1)
  1. ENBREL [Suspect]
     Active Substance: ETANERCEPT
     Indication: Spondylitis
     Dosage: UNK, QWK
     Route: 058
     Dates: start: 20221222

REACTIONS (3)
  - Rash macular [Unknown]
  - Injection site erythema [Unknown]
  - Local reaction [Unknown]

NARRATIVE: CASE EVENT DATE: 20230301
